FAERS Safety Report 4444630-X (Version None)
Quarter: 2004Q3

REPORT INFORMATION
  Report Type: 
  Country: None (occurrence: None)
  Receive Date: 20040902
  Receipt Date: 20040820
  Transmission Date: 20050211
  Serious: Yes (Death, Other)
  Sender: FDA-Public Use
  Company Number: 2004046187

PATIENT
  Age: 27 Year
  Sex: Male

DRUGS (1)
  1. GEODON [Suspect]
     Indication: ILL-DEFINED DISORDER
     Dosage: UNK, UNKNOWN
     Route: 065

REACTIONS (3)
  - CARDIAC ARREST [None]
  - PULMONARY EMBOLISM [None]
  - SUDDEN DEATH [None]
